FAERS Safety Report 17130941 (Version 1)
Quarter: 2019Q4

REPORT INFORMATION
  Report Type: Spontaneous
  Country: US (occurrence: US)
  Receive Date: 20191209
  Receipt Date: 20191209
  Transmission Date: 20200122
  Serious: No
  Sender: FDA-Public Use
  Company Number: US-ROCHE-2335467

PATIENT

DRUGS (11)
  1. IBUPROFEN. [Concomitant]
     Active Substance: IBUPROFEN
  2. ZOLPIDEM [Concomitant]
     Active Substance: ZOLPIDEM TARTRATE
  3. SULFONAMIDE [Concomitant]
     Active Substance: UNSPECIFIED INGREDIENT
  4. CIPROFLOXACIN. [Concomitant]
     Active Substance: CIPROFLOXACIN
  5. IODINE. [Concomitant]
     Active Substance: IODINE
  6. ZALEPLON. [Concomitant]
     Active Substance: ZALEPLON
  7. LYRICA [Concomitant]
     Active Substance: PREGABALIN
     Route: 048
  8. DOXEPIN [Concomitant]
     Active Substance: DOXEPIN
  9. TRIAZOLAM. [Concomitant]
     Active Substance: TRIAZOLAM
  10. DIAZEPAM. [Suspect]
     Active Substance: DIAZEPAM
     Indication: PRODUCT USED FOR UNKNOWN INDICATION
     Route: 065
  11. FENTANYL. [Concomitant]
     Active Substance: FENTANYL

REACTIONS (1)
  - Hypersensitivity [Unknown]
